FAERS Safety Report 9988600 (Version 1)
Quarter: 2014Q1

REPORT INFORMATION
  Report Type: Report from Study
  Country: JP (occurrence: JP)
  Receive Date: 20140310
  Receipt Date: 20140310
  Transmission Date: 20141002
  Serious: Yes (Other)
  Sender: FDA-Public Use
  Company Number: JP-ROCHE-1357991

PATIENT
  Sex: 0

DRUGS (3)
  1. BEVACIZUMAB [Suspect]
     Indication: COLORECTAL CANCER METASTATIC
     Dosage: DAY 1 OF EVERY 2 WEEK CYCLE
     Route: 065
  2. LEUCOVORIN [Suspect]
     Indication: COLORECTAL CANCER METASTATIC
     Dosage: FOR 1 WEEK
     Route: 065
  3. S-1 [Suspect]
     Indication: COLORECTAL CANCER METASTATIC
     Dosage: 80-120 MG/BODY
     Route: 048

REACTIONS (3)
  - Mucosal inflammation [Unknown]
  - Diarrhoea [Unknown]
  - Haemoglobin decreased [Unknown]
